FAERS Safety Report 6727849-4 (Version None)
Quarter: 2010Q2

REPORT INFORMATION
  Report Type: 
  Country: None (occurrence: None)
  Receive Date: 20100512
  Receipt Date: 20100503
  Transmission Date: 20101027
  Serious: Yes (Hospitalization, Other)
  Sender: FDA-Public Use
  Company Number: 2010SP025264

PATIENT
  Age: 82 Year
  Sex: Male

DRUGS (4)
  1. ASMANEX TWISTHALER [Suspect]
     Indication: ASTHMA
     Dosage: 220 MCG;BID;PO
     Route: 055
     Dates: start: 20080101
  2. ASMANEX TWISTHALER [Suspect]
     Indication: BRONCHITIS
     Dosage: 220 MCG;BID;PO
     Route: 055
     Dates: start: 20080101
  3. ASMANEX TWISTHALER [Suspect]
     Indication: CHRONIC OBSTRUCTIVE PULMONARY DISEASE
     Dosage: 220 MCG;BID;PO
     Route: 055
     Dates: start: 20080101
  4. VICODIN [Concomitant]

REACTIONS (8)
  - DEVICE MALFUNCTION [None]
  - DYSPNOEA [None]
  - EYE SWELLING [None]
  - OROPHARYNGEAL PAIN [None]
  - OVERDOSE [None]
  - RETCHING [None]
  - SWOLLEN TONGUE [None]
  - TONGUE ULCERATION [None]
